FAERS Safety Report 18079970 (Version 1)
Quarter: 2020Q3

REPORT INFORMATION
  Report Type: Spontaneous
  Country: FR (occurrence: FR)
  Receive Date: 20200728
  Receipt Date: 20200728
  Transmission Date: 20201103
  Serious: Yes (Disabling)
  Sender: FDA-Public Use
  Company Number: None

PATIENT
  Age: 26 Year
  Sex: Male
  Weight: 53 kg

DRUGS (1)
  1. MINOXIDIL 2% SANDOZ CONSEIL [Suspect]
     Active Substance: MINOXIDIL
     Indication: ALOPECIA
     Dates: start: 20200522, end: 20200527

REACTIONS (2)
  - Erectile dysfunction [None]
  - Loss of libido [None]

NARRATIVE: CASE EVENT DATE: 20200527
